FAERS Safety Report 16567174 (Version 2)
Quarter: 2019Q3

REPORT INFORMATION
  Report Type: Spontaneous
  Country: FR (occurrence: FR)
  Receive Date: 20190712
  Receipt Date: 20190731
  Transmission Date: 20191004
  Serious: Yes (Other)
  Sender: FDA-Public Use
  Company Number: FR-VERTEX PHARMACEUTICALS-2019-005425

PATIENT

DRUGS (1)
  1. ORKAMBI [Suspect]
     Active Substance: IVACAFTOR\LUMACAFTOR
     Indication: CYSTIC FIBROSIS
     Dosage: UNK
     Route: 048
     Dates: start: 2016

REACTIONS (19)
  - Headache [Unknown]
  - Metrorrhagia [Unknown]
  - Rash [Unknown]
  - Bronchospasm [Unknown]
  - Fatigue [Unknown]
  - Dyspnoea [Unknown]
  - Lung transplant [Unknown]
  - Myalgia [Unknown]
  - Diarrhoea [Unknown]
  - Liver function test increased [Unknown]
  - Respiration abnormal [Unknown]
  - Drug interaction [Unknown]
  - Depression [Unknown]
  - Abdominal pain [Unknown]
  - Pneumothorax [Unknown]
  - Haemoptysis [Unknown]
  - Tachycardia [Unknown]
  - Productive cough [Unknown]
  - Drug ineffective [Unknown]
